FAERS Safety Report 17525806 (Version 6)
Quarter: 2020Q4

REPORT INFORMATION
  Report Type: Spontaneous
  Country: US (occurrence: US)
  Receive Date: 20200311
  Receipt Date: 20201117
  Transmission Date: 20210113
  Serious: Yes (Hospitalization)
  Sender: FDA-Public Use
  Company Number: US-CELGENEUS-USA-20200301028

PATIENT
  Age: 69 Year
  Sex: Male

DRUGS (7)
  1. NOXAFIL [Concomitant]
     Active Substance: POSACONAZOLE
     Indication: PRODUCT USED FOR UNKNOWN INDICATION
     Route: 065
  2. XOSPATA [Concomitant]
     Active Substance: GILTERITINIB
     Dosage: 80 MILLIGRAM
     Route: 048
     Dates: start: 2020
  3. XOSPATA [Concomitant]
     Active Substance: GILTERITINIB
     Indication: ACUTE MYELOID LEUKAEMIA
     Dosage: 120 MILLIGRAM
     Route: 048
     Dates: start: 20200129
  4. XOSPATA [Concomitant]
     Active Substance: GILTERITINIB
     Dosage: 80 MILLIGRAM
     Route: 048
     Dates: start: 202002
  5. XOSPATA [Concomitant]
     Active Substance: GILTERITINIB
     Dosage: 120 MILLIGRAM
     Route: 048
     Dates: start: 2020
  6. IDHIFA [Suspect]
     Active Substance: ENASIDENIB MESYLATE
     Indication: ACUTE MYELOID LEUKAEMIA
     Dosage: 100 MILLIGRAM
     Route: 048
     Dates: start: 20200203
  7. XOSPATA [Concomitant]
     Active Substance: GILTERITINIB
     Dosage: 120 MILLIGRAM
     Route: 048
     Dates: start: 2020

REACTIONS (7)
  - Platelet count decreased [Unknown]
  - Immunodeficiency [Unknown]
  - Nail bed bleeding [Unknown]
  - Arthralgia [Unknown]
  - Plantar fasciitis [Unknown]
  - Onychoclasis [Unknown]
  - Weight decreased [Not Recovered/Not Resolved]

NARRATIVE: CASE EVENT DATE: 202002
